FAERS Safety Report 4576396-7 (Version None)
Quarter: 2005Q1

REPORT INFORMATION
  Report Type: 
  Country: None (occurrence: None)
  Receive Date: 20050207
  Receipt Date: 20050120
  Transmission Date: 20050727
  Serious: Yes (Hospitalization)
  Sender: FDA-Public Use
  Company Number: DSA_25674_2005

PATIENT
  Age: 69 Year
  Sex: Female

DRUGS (5)
  1. TILDIEM [Suspect]
     Dosage: 120 MG Q DAY PO
     Route: 048
  2. COLCHICINE ^HOUDE^ [Suspect]
     Dosage: 1 MG Q DAY PO
     Route: 048
  3. KARDEGIC [Suspect]
     Dosage: 160 MG Q DAY PO
     Route: 048
  4. ROCALTROL [Suspect]
     Dosage: 0.25 MCG Q DAY PO
     Route: 048
  5. TAHOR [Suspect]
     Indication: HYPERCHOLESTEROLAEMIA
     Dosage: DF PO
     Route: 048

REACTIONS (1)
  - TENDON RUPTURE [None]
